FAERS Safety Report 19396696 (Version 3)
Quarter: 2022Q1

REPORT INFORMATION
  Report Type: Spontaneous
  Country: IT (occurrence: IT)
  Receive Date: 20210610
  Receipt Date: 20220131
  Transmission Date: 20220423
  Serious: Yes (Hospitalization, Other)
  Sender: FDA-Public Use
  Company Number: IT-IPCA LABORATORIES LIMITED-IPC-2021-IT-001108

PATIENT

DRUGS (18)
  1. METOCLOPRAMIDE [Suspect]
     Active Substance: METOCLOPRAMIDE
     Indication: Dyspepsia
     Dosage: 10 MILLIGRAM, QD
     Route: 048
  2. METOCLOPRAMIDE [Suspect]
     Active Substance: METOCLOPRAMIDE
     Indication: Nausea
     Dosage: 10 MILLIGRAM, BID
     Route: 048
  3. BISOPROLOL [Suspect]
     Active Substance: BISOPROLOL
     Indication: Hypertension
     Dosage: 2 MILLIGRAM, QD
     Route: 065
  4. BISOPROLOL [Suspect]
     Active Substance: BISOPROLOL
     Dosage: 5 MILLIGRAM, QD
     Route: 065
  5. ATENOLOL [Suspect]
     Active Substance: ATENOLOL
     Indication: Product used for unknown indication
     Dosage: 12.5 MILLIGRAM, QD
     Route: 065
  6. HYDROCHLOROTHIAZIDE [Suspect]
     Active Substance: HYDROCHLOROTHIAZIDE
     Indication: Hypertension
     Dosage: 6.25 MILLIGRAM, QD
     Route: 065
  7. METHYLDOPA [Suspect]
     Active Substance: METHYLDOPA
     Indication: Hypertension
     Dosage: 500 MILLIGRAM, TID
     Route: 065
  8. NIFEDIPINE [Suspect]
     Active Substance: NIFEDIPINE
     Indication: Hypertension
     Dosage: 20 MILLIGRAM, QD
     Route: 065
  9. NIFEDIPINE [Suspect]
     Active Substance: NIFEDIPINE
     Dosage: 30 MILLIGRAM, QD
     Route: 065
  10. INSULIN LISPRO [Suspect]
     Active Substance: INSULIN LISPRO
     Indication: Gestational diabetes
     Dosage: 6 UNIT
     Route: 058
  11. INSULIN LISPRO [Suspect]
     Active Substance: INSULIN LISPRO
     Dosage: 10 UNIT
     Route: 058
  12. INSULIN GLARGINE [Suspect]
     Active Substance: INSULIN GLARGINE
     Indication: Gestational diabetes
     Dosage: 15 UNIT
     Route: 058
  13. LABETALOL [Suspect]
     Active Substance: LABETALOL\LABETALOL HYDROCHLORIDE
     Indication: Hypertension
     Dosage: 20 MILLIGRAM
     Route: 042
  14. URAPIDIL [Suspect]
     Active Substance: URAPIDIL
     Indication: Product used for unknown indication
     Dosage: 25 MILLIGRAM
     Route: 042
  15. URAPIDIL [Suspect]
     Active Substance: URAPIDIL
     Dosage: 0.5 MILLIGRAM/MINUTE
     Route: 042
  16. MAGNESIUM SULFATE [Suspect]
     Active Substance: MAGNESIUM SULFATE
     Indication: Product used for unknown indication
     Dosage: 250 MILLILITER
     Route: 042
  17. POTASSIUM CHLORIDE [Suspect]
     Active Substance: POTASSIUM CHLORIDE
     Indication: Hypokalaemia
     Dosage: 250 MILLILITER (40 MILLIEQUIVALENT)
     Route: 042
  18. DOXAZOSIN [Suspect]
     Active Substance: DOXAZOSIN MESYLATE
     Indication: Product used for unknown indication
     Dosage: 14 MILLIGRAM, QD
     Route: 065

REACTIONS (12)
  - Phaeochromocytoma [Unknown]
  - Condition aggravated [Unknown]
  - Hypertension [Unknown]
  - Myalgia [Unknown]
  - Asthenia [Unknown]
  - Anxiety [Unknown]
  - Palpitations [Unknown]
  - Headache [Unknown]
  - Hypokalaemia [Unknown]
  - Proteinuria [Unknown]
  - Hypertensive crisis [Unknown]
  - Maternal exposure during pregnancy [Unknown]
